FAERS Safety Report 21577021 (Version 1)
Quarter: 2022Q4

REPORT INFORMATION
  Report Type: Spontaneous
  Country: US (occurrence: None)
  Receive Date: 20221109
  Receipt Date: 20221109
  Transmission Date: 20230113
  Serious: Yes (Other)
  Sender: FDA-Public Use
  Company Number: None

PATIENT
  Sex: Female

DRUGS (1)
  1. TIOPRONIN [Suspect]
     Active Substance: TIOPRONIN
     Dosage: 100MG BID ORAL?
     Route: 048
     Dates: start: 202210

REACTIONS (4)
  - Dizziness [None]
  - Nausea [None]
  - Urine output decreased [None]
  - Epistaxis [None]
